FAERS Safety Report 16153174 (Version 1)
Quarter: 2019Q2

REPORT INFORMATION
  Report Type: Spontaneous
  Country: US (occurrence: US)
  Receive Date: 20190403
  Receipt Date: 20190403
  Transmission Date: 20190711
  Serious: No
  Sender: FDA-Public Use
  Company Number: US-TEVA-2019-US-1022674

PATIENT
  Sex: Female

DRUGS (2)
  1. CLONAZEPAM ACCORD [Suspect]
     Active Substance: CLONAZEPAM
     Indication: ANXIETY
     Route: 065
  2. CLONAZEPAM ACTAVIS [Suspect]
     Active Substance: CLONAZEPAM
     Indication: PANIC DISORDER

REACTIONS (6)
  - Withdrawal syndrome [Unknown]
  - Product substitution issue [Unknown]
  - Headache [Unknown]
  - Drug ineffective [Unknown]
  - Hot flush [Unknown]
  - Nausea [Unknown]
